FAERS Safety Report 14630355 (Version 1)
Quarter: 2018Q1

REPORT INFORMATION
  Report Type: Spontaneous
  Country: US (occurrence: US)
  Receive Date: 20180313
  Receipt Date: 20180313
  Transmission Date: 20180509
  Serious: No
  Sender: FDA-Public Use
  Company Number: None

PATIENT
  Age: 40 Year
  Sex: Female
  Weight: 66.6 kg

DRUGS (3)
  1. MONTELUKAST [Suspect]
     Active Substance: MONTELUKAST SODIUM
     Indication: ALLERGY PROPHYLAXIS
     Dosage: ?          QUANTITY:1 TABLET(S);?
     Route: 048
     Dates: start: 20180302, end: 20180313
  2. ALBUTEROL. [Concomitant]
     Active Substance: ALBUTEROL
  3. ZYRTEC [Concomitant]
     Active Substance: CETIRIZINE HYDROCHLORIDE

REACTIONS (7)
  - Anger [None]
  - Headache [None]
  - Irritability [None]
  - Crying [None]
  - Anxiety [None]
  - Nausea [None]
  - Loss of personal independence in daily activities [None]

NARRATIVE: CASE EVENT DATE: 20180310
